FAERS Safety Report 6402790-5 (Version None)
Quarter: 2009Q4

REPORT INFORMATION
  Report Type: 
  Country: None (occurrence: None)
  Receive Date: 20091016
  Receipt Date: 20070329
  Transmission Date: 20100525
  Serious: Yes (Disabling)
  Sender: FDA-Public Use
  Company Number: US-ASTRAZENECA-2006UW08397

PATIENT
  Sex: Male
  Weight: 98.9 kg

DRUGS (11)
  1. SEROQUEL [Suspect]
     Route: 048
     Dates: start: 19991110
  2. TRICOR [Concomitant]
     Route: 048
     Dates: start: 20010720
  3. LOXITANE [Concomitant]
     Route: 048
     Dates: start: 20031111
  4. ATIVAN [Concomitant]
     Route: 048
     Dates: start: 19970326
  5. VIOXX [Concomitant]
     Route: 048
     Dates: start: 20001221
  6. DEPAKOTE [Concomitant]
     Route: 048
     Dates: start: 20031111
  7. COZAAR [Concomitant]
     Route: 048
     Dates: start: 20001221
  8. WELLBUTRIN [Concomitant]
     Route: 048
     Dates: start: 20040602
  9. GLUCOPHAGE [Concomitant]
     Route: 048
     Dates: start: 20001221
  10. REMERON [Concomitant]
     Route: 048
     Dates: start: 20030911
  11. PREVACID [Concomitant]
     Route: 048
     Dates: start: 20031111

REACTIONS (1)
  - ILL-DEFINED DISORDER [None]
